FAERS Safety Report 24359413 (Version 2)
Quarter: 2024Q4

REPORT INFORMATION
  Report Type: Report from Study
  Country: US (occurrence: US)
  Receive Date: 20240924
  Receipt Date: 20241017
  Transmission Date: 20250115
  Serious: Yes (Death, Life-Threatening, Hospitalization, Other)
  Sender: IOVANCE BIOTHERAPEUTICS MANUFACTURING LLC
  Company Number: US-IOVANCE BIOTHERAPEUTICS INC.-IOV2024000033

PATIENT

DRUGS (3)
  1. ALDESLEUKIN [Suspect]
     Active Substance: ALDESLEUKIN
     Indication: Product used for unknown indication
     Dosage: UNK
     Route: 065
     Dates: start: 20240904, end: 20240905
  2. FLUDARABINE [Suspect]
     Active Substance: FLUDARABINE PHOSPHATE
     Indication: Product used for unknown indication
     Dosage: UNK
     Route: 065
     Dates: start: 20240829, end: 20240902
  3. CYCLOPHOSPHAMIDE [Suspect]
     Active Substance: CYCLOPHOSPHAMIDE
     Indication: Product used for unknown indication
     Dosage: UNK
     Route: 065
     Dates: start: 20240827, end: 20240828

REACTIONS (10)
  - Multiple organ dysfunction syndrome [Fatal]
  - Septic shock [Unknown]
  - Klebsiella bacteraemia [Unknown]
  - Mental status changes [Unknown]
  - Legionella infection [Unknown]
  - Pulmonary oedema [Not Recovered/Not Resolved]
  - Atrial fibrillation [Unknown]
  - Hypoxia [Unknown]
  - Tachycardia [Unknown]
  - Acute kidney injury [Unknown]

NARRATIVE: CASE EVENT DATE: 20240913
